FAERS Safety Report 4806980-4 (Version None)
Quarter: 2005Q4

REPORT INFORMATION
  Report Type: 
  Country: None (occurrence: None)
  Receive Date: 20051019
  Receipt Date: 20050929
  Transmission Date: 20060501
  Serious: Yes (Other)
  Sender: FDA-Public Use
  Company Number: GBS051018595

PATIENT
  Age: 13 Year
  Sex: Female
  Weight: 54 kg

DRUGS (3)
  1. FLUOXETINE HCL [Suspect]
     Indication: DEPRESSION
     Dosage: 20 MG
     Dates: start: 20050809, end: 20050904
  2. BECONASE [Concomitant]
  3. SALBUTAMOL [Concomitant]

REACTIONS (4)
  - ABDOMINAL DISTENSION [None]
  - DYSURIA [None]
  - SWELLING FACE [None]
  - THIRST [None]
